FAERS Safety Report 17583817 (Version 3)
Quarter: 2020Q2

REPORT INFORMATION
  Report Type: Report from Study
  Country: US (occurrence: US)
  Receive Date: 20200326
  Receipt Date: 20200608
  Transmission Date: 20200713
  Serious: Yes (Disabling, Other)
  Sender: FDA-Public Use
  Company Number: NVSC2020US083149

PATIENT
  Age: 52 Year
  Sex: Female

DRUGS (2)
  1. MAYZENT [Suspect]
     Active Substance: SIPONIMOD
     Dosage: 2 MG, QD
     Route: 048
     Dates: start: 20200226
  2. MAYZENT [Suspect]
     Active Substance: SIPONIMOD
     Indication: PRODUCT USED FOR UNKNOWN INDICATION
     Dosage: 2 MG, QD
     Route: 048
     Dates: start: 20200301

REACTIONS (6)
  - Loss of control of legs [Not Recovered/Not Resolved]
  - Headache [Not Recovered/Not Resolved]
  - Visual field defect [Not Recovered/Not Resolved]
  - Hot flush [Unknown]
  - Drug interaction [Unknown]
  - Nausea [Unknown]

NARRATIVE: CASE EVENT DATE: 20200301
